FAERS Safety Report 4941617-5 (Version None)
Quarter: 2006Q1

REPORT INFORMATION
  Report Type: 
  Country: None (occurrence: None)
  Receive Date: 20060308
  Receipt Date: 20060223
  Transmission Date: 20060701
  Serious: No
  Sender: FDA-Public Use
  Company Number: 2006-139016-NL

PATIENT
  Age: 53 Year
  Sex: Male

DRUGS (7)
  1. DANAPAROID SODIUM [Suspect]
     Indication: DISSEMINATED INTRAVASCULAR COAGULATION
     Dosage: ANTI_XA INTRAVENOUS (NOS)
     Route: 042
     Dates: start: 20060107, end: 20060115
  2. DANAPAROID SODIUM [Suspect]
     Indication: DISSEMINATED INTRAVASCULAR COAGULATION
     Dosage: ANTI_XA INTRAVENOUS (NOS)
     Route: 042
     Dates: start: 20060121, end: 20060214
  3. GABEXATE MESILATE [Suspect]
     Indication: DISSEMINATED INTRAVASCULAR COAGULATION
     Dosage: DF/2000 MG
     Dates: start: 20060107, end: 20060115
  4. GABEXATE MESILATE [Suspect]
     Indication: DISSEMINATED INTRAVASCULAR COAGULATION
     Dosage: DF/2000 MG
     Dates: start: 20060121, end: 20060214
  5. ARBEKACIN SULFATE [Concomitant]
  6. OMEPRAZOLE [Concomitant]
  7. PREDNISOLONE [Concomitant]

REACTIONS (4)
  - CEREBRAL HAEMORRHAGE [None]
  - CONDITION AGGRAVATED [None]
  - DISEASE RECURRENCE [None]
  - DISSEMINATED INTRAVASCULAR COAGULATION [None]
